FAERS Safety Report 13990641 (Version 1)
Quarter: 2017Q3

REPORT INFORMATION
  Report Type: Spontaneous
  Country: NL (occurrence: NL)
  Receive Date: 20170920
  Receipt Date: 20170920
  Transmission Date: 20171128
  Serious: Yes (Other)
  Sender: FDA-Public Use
  Company Number: NL-SHIRE-NL201721410

PATIENT

DRUGS (6)
  1. SUBCUVIA [Suspect]
     Active Substance: HUMAN IMMUNOGLOBULIN G
     Indication: HYPOGAMMAGLOBULINAEMIA
     Dosage: 15 ML, 1X/WEEK
     Route: 065
     Dates: start: 20170608
  2. SUBCUVIA [Suspect]
     Active Substance: HUMAN IMMUNOGLOBULIN G
     Dosage: 15 ML, 1X/WEEK
     Route: 065
     Dates: start: 20170614
  3. SUBCUVIA [Suspect]
     Active Substance: HUMAN IMMUNOGLOBULIN G
     Dosage: UNK
     Dates: start: 20170420
  4. SUBCUVIA [Suspect]
     Active Substance: HUMAN IMMUNOGLOBULIN G
     Dosage: 15 ML, 1X/WEEK
     Route: 065
     Dates: start: 20170608
  5. SUBCUVIA [Suspect]
     Active Substance: HUMAN IMMUNOGLOBULIN G
     Dosage: 15 ML, 1X/WEEK
     Route: 065
     Dates: start: 20170614
  6. SUBCUVIA [Suspect]
     Active Substance: HUMAN IMMUNOGLOBULIN G
     Dosage: 15 ML, 1X/WEEK
     Route: 065
     Dates: start: 20170420

REACTIONS (2)
  - Pneumonia [Unknown]
  - Myalgia [Unknown]

NARRATIVE: CASE EVENT DATE: 20170608
